FAERS Safety Report 23468679 (Version 3)
Quarter: 2024Q2

REPORT INFORMATION
  Report Type: Report from Study
  Country: US (occurrence: US)
  Receive Date: 20240202
  Receipt Date: 20240420
  Transmission Date: 20240715
  Serious: Yes (Other)
  Sender: FDA-Public Use
  Company Number: US-ABBVIE-5615841

PATIENT
  Sex: Female

DRUGS (1)
  1. RINVOQ [Suspect]
     Active Substance: UPADACITINIB
     Indication: Dermatitis atopic
     Route: 048
     Dates: start: 20231016

REACTIONS (5)
  - Faeces hard [Unknown]
  - Systemic lupus erythematosus [Unknown]
  - Acne [Unknown]
  - Skin disorder [Recovering/Resolving]
  - Colitis [Unknown]
